FAERS Safety Report 20551567 (Version 1)
Quarter: 2022Q1

REPORT INFORMATION
  Report Type: Spontaneous
  Country: US (occurrence: US)
  Receive Date: 20220304
  Receipt Date: 20220304
  Transmission Date: 20220424
  Serious: Yes (Hospitalization, Other)
  Sender: FDA-Public Use
  Company Number: US-APOTEX-2022AP003948

PATIENT
  Sex: Male

DRUGS (4)
  1. MIRTAZAPINE [Suspect]
     Active Substance: MIRTAZAPINE
     Indication: Product used for unknown indication
     Dosage: UNK
     Route: 065
  2. FENTANYL [Suspect]
     Active Substance: FENTANYL
     Indication: Product used for unknown indication
     Dosage: UNK
     Route: 065
  3. METHYLENE BLUE [Suspect]
     Active Substance: METHYLENE BLUE
     Indication: Vasoplegia syndrome
     Dosage: 1 MILLIGRAM/KILOGRAM
     Route: 040
  4. METHYLENE BLUE [Suspect]
     Active Substance: METHYLENE BLUE
     Dosage: 0.5 MILLIGRAM/KILOGRAM, SECOND DOSE ADMINISTERED 16 HOURS AFTER FIRST DOSE
     Route: 040

REACTIONS (1)
  - Serotonin syndrome [Unknown]
